FAERS Safety Report 15624454 (Version 1)
Quarter: 2018Q4

REPORT INFORMATION
  Report Type: Spontaneous
  Country: US (occurrence: US)
  Receive Date: 20181116
  Receipt Date: 20181116
  Transmission Date: 20190205
  Serious: No
  Sender: FDA-Public Use
  Company Number: US-ZYDUS-018280

PATIENT
  Age: 70 Year
  Sex: Female

DRUGS (16)
  1. ATORVASTATIN [Concomitant]
     Active Substance: ATORVASTATIN
     Indication: BLOOD CHOLESTEROL INCREASED
  2. HYDROCHLOROTHIAZIDE. [Concomitant]
     Active Substance: HYDROCHLOROTHIAZIDE
     Indication: CARDIAC DISORDER
  3. CLOBETASOL [Concomitant]
     Active Substance: CLOBETASOL
     Indication: VULVOVAGINAL DRYNESS
  4. SALBUTAMOL [Concomitant]
     Active Substance: ALBUTEROL
     Indication: ASTHMA
  5. PANTOPRAZOLE [Concomitant]
     Active Substance: PANTOPRAZOLE
     Indication: PRODUCT USED FOR UNKNOWN INDICATION
  6. FLUTICASONE PROPIONATE/SALMETEROL XINAFOATE [Concomitant]
     Indication: ASTHMA
  7. SALBUTAMOL [Concomitant]
     Active Substance: ALBUTEROL
     Indication: ASTHMA
  8. GLYCERYL TRINITRATE [Concomitant]
     Active Substance: NITROGLYCERIN
     Indication: PRODUCT USED FOR UNKNOWN INDICATION
  9. POTASSIUM [Concomitant]
     Active Substance: POTASSIUM
     Indication: CARDIAC DISORDER
  10. METOPROLOL. [Concomitant]
     Active Substance: METOPROLOL
     Indication: CARDIAC DISORDER
  11. HYDROXYCHLOROQUINE [Suspect]
     Active Substance: HYDROXYCHLOROQUINE
     Indication: RHEUMATOID ARTHRITIS
     Route: 048
     Dates: start: 201709, end: 20171122
  12. CLOBETASOL [Concomitant]
     Active Substance: CLOBETASOL
     Indication: SKIN DISORDER
  13. ESTRADIOL. [Concomitant]
     Active Substance: ESTRADIOL
     Indication: VULVOVAGINAL DRYNESS
  14. ASPIRIN. [Concomitant]
     Active Substance: ASPIRIN
     Indication: CARDIAC DISORDER
  15. LEVOTHYROXINE. [Concomitant]
     Active Substance: LEVOTHYROXINE
     Indication: HYPOTHYROIDISM
  16. TIOTROPIUM [Concomitant]
     Active Substance: TIOTROPIUM
     Indication: ASTHMA
     Dosage: ONE INHALATION

REACTIONS (1)
  - Pruritus [Not Recovered/Not Resolved]
